FAERS Safety Report 13788065 (Version 1)
Quarter: 2017Q3

REPORT INFORMATION
  Report Type: Spontaneous
  Country: US (occurrence: US)
  Receive Date: 20170725
  Receipt Date: 20170725
  Transmission Date: 20171127
  Serious: No
  Sender: FDA-Public Use
  Company Number: US-JNJFOC-20170627448

PATIENT
  Age: 20 Month
  Sex: Male

DRUGS (8)
  1. MOTRIN INFANTS [Suspect]
     Active Substance: IBUPROFEN
     Indication: COUGH
     Route: 065
  2. TYLENOL [Concomitant]
     Active Substance: ACETAMINOPHEN
     Indication: PYREXIA
     Route: 065
  3. CHILDRENS BENADRYL ALLERGY [Concomitant]
     Active Substance: DIPHENHYDRAMINE HYDROCHLORIDE
     Indication: PRODUCT USED FOR UNKNOWN INDICATION
     Dosage: NIGHT, AT BEDTIME
     Route: 065
  4. TYLENOL [Concomitant]
     Active Substance: ACETAMINOPHEN
     Indication: COUGH
     Route: 065
  5. ALBUTEROL. [Concomitant]
     Active Substance: ALBUTEROL
     Indication: PRODUCT USED FOR UNKNOWN INDICATION
     Route: 065
  6. MOTRIN INFANTS [Suspect]
     Active Substance: IBUPROFEN
     Indication: PYREXIA
     Route: 065
  7. MOTRIN INFANTS [Suspect]
     Active Substance: IBUPROFEN
     Indication: PYREXIA
     Dosage: NEXT DOSE RECEIVED AFTER 3.5 HOURS
     Route: 065
  8. MOTRIN INFANTS [Suspect]
     Active Substance: IBUPROFEN
     Indication: COUGH
     Dosage: NEXT DOSE RECEIVED AFTER 3.5 HOURS
     Route: 065

REACTIONS (2)
  - Prescribed overdose [Unknown]
  - Accidental overdose [Unknown]
